FAERS Safety Report 8795884 (Version 1)
Quarter: 2012Q4

REPORT INFORMATION
  Report Type: 
  Country: FR (occurrence: FR)
  Receive Date: 20120919
  Receipt Date: 20120919
  Transmission Date: 20130627
  Serious: Yes (Hospitalization)
  Sender: FDA-Public Use
  Company Number: FR-ASTRAZENECA-2012SE71136

PATIENT
  Age: 23211 Day
  Sex: Female

DRUGS (6)
  1. CRESTOR [Suspect]
     Indication: HYPERCHOLESTEROLAEMIA
     Route: 048
  2. KARDEGIC [Interacting]
     Indication: PLATELET AGGREGATION INHIBITION
     Route: 048
     Dates: end: 20120727
  3. MINISINTROM [Suspect]
     Indication: ANTICOAGULANT THERAPY
     Route: 048
     Dates: end: 20120727
  4. TRIATEC [Concomitant]
     Route: 048
  5. CARDENSIEL [Concomitant]
     Route: 048
  6. INIPOMP [Concomitant]
     Route: 048

REACTIONS (6)
  - Drug interaction [Unknown]
  - Haematoma [Not Recovered/Not Resolved]
  - Fall [Unknown]
  - Renal failure [Unknown]
  - Haemoglobin decreased [Unknown]
  - International normalised ratio increased [Recovered/Resolved]
